FAERS Safety Report 18401830 (Version 2)
Quarter: 2020Q4

REPORT INFORMATION
  Report Type: Spontaneous
  Country: IT (occurrence: IT)
  Receive Date: 20201020
  Receipt Date: 20201222
  Transmission Date: 20210114
  Serious: Yes (Hospitalization)
  Sender: FDA-Public Use
  Company Number: IT-AUROBINDO-AUR-APL-2020-052251

PATIENT
  Age: 91 Year
  Sex: Male
  Weight: 90 kg

DRUGS (1)
  1. QUETIAPINE FILM-COATED TABLET [Suspect]
     Active Substance: QUETIAPINE
     Indication: AGITATION
     Dosage: 300 MILLIGRAM (TOTAL)
     Route: 048
     Dates: start: 20201003, end: 20201003

REACTIONS (2)
  - Product prescribing error [Recovered/Resolved]
  - Sopor [Recovered/Resolved]

NARRATIVE: CASE EVENT DATE: 20201003
